FAERS Safety Report 6088153-3 (Version None)
Quarter: 2009Q1

REPORT INFORMATION
  Report Type: 
  Country: None (occurrence: None)
  Receive Date: 20090224
  Receipt Date: 20090211
  Transmission Date: 20090719
  Serious: Yes (Other)
  Sender: FDA-Public Use
  Company Number: PHHY2009BR05359

PATIENT
  Age: 55 Year
  Sex: Female
  Weight: 53 kg

DRUGS (7)
  1. FORASEQ [Suspect]
     Indication: ASTHMA
     Dosage: UNK
  2. AKINETON [Concomitant]
     Dosage: 1 TABLET/DAY
     Route: 048
  3. HALDOL [Concomitant]
     Indication: DEPRESSION
     Dosage: 1 TABLET/DAY
     Route: 048
  4. TEGRETOL [Concomitant]
     Indication: SLEEP DISORDER
     Dosage: 1 TABLET/DAY
     Route: 048
  5. CAPTOPRIL [Concomitant]
     Indication: HYPERTENSION
     Dosage: 3 TABLETS/DAY
     Route: 048
  6. AMLODIPINE [Concomitant]
     Indication: HYPERTENSION
     Dosage: 1 TABLET/DAY
     Route: 048
  7. SIMVASTATIN [Concomitant]
     Indication: BLOOD CHOLESTEROL
     Dosage: 1 TABLET/DAY
     Route: 048

REACTIONS (4)
  - ASTHMA [None]
  - INJURY [None]
  - NERVOUSNESS [None]
  - ROAD TRAFFIC ACCIDENT [None]
